FAERS Safety Report 4458040-2 (Version None)
Quarter: 2004Q3

REPORT INFORMATION
  Report Type: 
  Country: None (occurrence: None)
  Receive Date: 20040922
  Receipt Date: 20040907
  Transmission Date: 20050211
  Serious: Yes (Other)
  Sender: FDA-Public Use
  Company Number: FR_040904721

PATIENT
  Age: 47 Year
  Sex: Male

DRUGS (2)
  1. CEFACLOR [Suspect]
     Dosage: 500 MG DAY
  2. SURGAM (TIAPROFENIC ACID) [Concomitant]

REACTIONS (1)
  - ANGIONEUROTIC OEDEMA [None]
